FAERS Safety Report 21886604 (Version 2)
Quarter: 2023Q1

REPORT INFORMATION
  Report Type: Spontaneous
  Country: US (occurrence: US)
  Receive Date: 20230119
  Receipt Date: 20230214
  Transmission Date: 20230418
  Serious: Yes (Death, Hospitalization)
  Sender: FDA-Public Use
  Company Number: US-PARATEK PHARMACEUTICALS, INC.-2023PTK00019

PATIENT
  Age: 62 Year
  Sex: Female
  Weight: 124 kg

DRUGS (15)
  1. NUZYRA [Suspect]
     Active Substance: OMADACYCLINE
     Indication: Limb injury
     Dosage: 450 MG, 1X/DAY
     Route: 048
     Dates: start: 20220708, end: 20220709
  2. NUZYRA [Suspect]
     Active Substance: OMADACYCLINE
     Dosage: 300 MG, 1X/DAY
     Route: 048
     Dates: start: 20220710, end: 202207
  3. ALBUTEROL SULFATE [Concomitant]
     Active Substance: ALBUTEROL SULFATE
  4. ASPIRIN [Concomitant]
     Active Substance: ASPIRIN
  5. CELECOXIB [Concomitant]
     Active Substance: CELECOXIB
  6. DULOXETINE [Concomitant]
     Active Substance: DULOXETINE
  7. FEXOFENADINE [Concomitant]
     Active Substance: FEXOFENADINE HYDROCHLORIDE
  8. FUROSEMIDE [Concomitant]
     Active Substance: FUROSEMIDE
  9. LEVOTHYROXINE [Concomitant]
     Active Substance: LEVOTHYROXINE
  10. MODAFINIL [Concomitant]
     Active Substance: MODAFINIL
  11. MONTELUKAST [Concomitant]
     Active Substance: MONTELUKAST SODIUM
  12. OMEPRAZOLE [Concomitant]
     Active Substance: OMEPRAZOLE
  13. OXYCODONE [Concomitant]
     Active Substance: OXYCODONE
  14. TOPIRAMATE [Concomitant]
     Active Substance: TOPIRAMATE
  15. TRAZODONE [Concomitant]
     Active Substance: TRAZODONE HYDROCHLORIDE

REACTIONS (3)
  - Acute respiratory failure [Fatal]
  - Hypoxia [Fatal]
  - Pickwickian syndrome [Fatal]

NARRATIVE: CASE EVENT DATE: 20220812
